FAERS Safety Report 17576883 (Version 1)
Quarter: 2020Q1

REPORT INFORMATION
  Report Type: Spontaneous
  Country: US (occurrence: US)
  Receive Date: 20200319
  Receipt Date: 20200319
  Transmission Date: 20200409
  Serious: No
  Sender: FDA-Public Use
  Company Number: None

PATIENT
  Age: 35 Year
  Sex: Female

DRUGS (1)
  1. BUPRENORPHINE/NALOXONE [Suspect]
     Active Substance: BUPRENORPHINE\NALOXONE
     Indication: DRUG DEPENDENCE
     Dosage: 8-2 MG 1.5 QD SUBLINGUAL
     Route: 060
     Dates: start: 201911, end: 202003

REACTIONS (3)
  - Vomiting [None]
  - Abdominal pain [None]
  - Food craving [None]

NARRATIVE: CASE EVENT DATE: 20200310
